FAERS Safety Report 8575520-9 (Version None)
Quarter: 2012Q3

REPORT INFORMATION
  Report Type: 
  Country: None (occurrence: None)
  Receive Date: 20120807
  Receipt Date: 20120801
  Transmission Date: 20120928
  Serious: Yes (Other)
  Sender: FDA-Public Use
  Company Number: PHEH2012US014808

PATIENT
  Sex: Female

DRUGS (13)
  1. CYTOMEL [Concomitant]
     Dosage: 15 UG
  2. ACETYLSALICYLIC ACID SRT [Concomitant]
     Dosage: 325, QD
  3. RECLAST [Suspect]
     Indication: RHEUMATOID ARTHRITIS
     Dosage: 5 MG /15 MIN YEARLY
     Route: 042
     Dates: start: 20110706
  4. PROBIOTICS [Concomitant]
     Indication: RHEUMATOID ARTHRITIS
  5. SYNTHROID [Concomitant]
     Indication: IMPAIRED GASTRIC EMPTYING
     Dosage: 50 UG
     Route: 048
  6. VITAMIN B COMPLEX CAP [Concomitant]
     Indication: MENOPAUSE
     Route: 048
  7. CALCIUM [Concomitant]
  8. PROBIOTICS [Concomitant]
     Indication: OSTEOARTHRITIS
  9. OMEPRAZOLE [Concomitant]
  10. RECLAST [Suspect]
     Indication: OSTEOARTHRITIS
     Dosage: 5 MG / 15 MIN YEARLY
     Route: 042
     Dates: start: 20100703
  11. TYLENOL [Concomitant]
     Dosage: 500
  12. CALCIUM WITH VITAMIN D [Concomitant]
     Indication: MALNUTRITION
     Dosage: UNK UKN, UNK
     Route: 048
  13. DIGESTIVE ENZYMES [Concomitant]
     Indication: ANAEMIA

REACTIONS (11)
  - BLOOD IRON DECREASED [None]
  - TRANSFERRIN SATURATION DECREASED [None]
  - MYALGIA [None]
  - ARTHRALGIA [None]
  - AUTOIMMUNE DISORDER [None]
  - PROTEIN TOTAL DECREASED [None]
  - MUSCLE SPASMS [None]
  - DRUG INEFFECTIVE [None]
  - EOSINOPHIL PERCENTAGE INCREASED [None]
  - EOSINOPHIL COUNT INCREASED [None]
  - LYMPHOCYTE PERCENTAGE DECREASED [None]
